FAERS Safety Report 8219589-X (Version None)
Quarter: 2012Q1

REPORT INFORMATION
  Report Type: 
  Country: None (occurrence: None)
  Receive Date: 20120319
  Receipt Date: 20120314
  Transmission Date: 20120608
  Serious: Yes (Other)
  Sender: FDA-Public Use
  Company Number: US-PFIZER INC-2012032546

PATIENT
  Sex: Male
  Weight: 90.703 kg

DRUGS (5)
  1. NEURONTIN [Suspect]
     Indication: MUSCLE SPASMS
     Dosage: 100 MG, 3X/DAY
     Route: 048
     Dates: start: 20120203, end: 20120227
  2. NEURONTIN [Suspect]
     Indication: ASTHENIA
  3. HYDROCHLOROTHIAZIDE [Concomitant]
     Dosage: 5 MG, DAILY
  4. NEURONTIN [Suspect]
     Indication: PAIN IN EXTREMITY
  5. GLIMEPIRIDE [Concomitant]
     Indication: DIABETES MELLITUS
     Dosage: 1 MG, DAILY

REACTIONS (6)
  - VISUAL IMPAIRMENT [None]
  - COORDINATION ABNORMAL [None]
  - DIZZINESS [None]
  - GAIT DISTURBANCE [None]
  - FATIGUE [None]
  - SOMNOLENCE [None]
